FAERS Safety Report 7799315-9 (Version None)
Quarter: 2011Q4

REPORT INFORMATION
  Report Type: 
  Country: None (occurrence: None)
  Receive Date: 20111006
  Receipt Date: 20110926
  Transmission Date: 20120403
  Serious: Yes (Hospitalization)
  Sender: FDA-Public Use
  Company Number: US-SANOFI-AVENTIS-2011SA044225

PATIENT
  Age: 65 Year
  Sex: Male
  Weight: 86 kg

DRUGS (7)
  1. WARFARIN SODIUM [Concomitant]
  2. NIFEDIPINE [Concomitant]
  3. METFORMIN HCL [Concomitant]
     Dates: end: 20110317
  4. ASPIRIN [Concomitant]
  5. CYCLOBENZAPRINE [Concomitant]
  6. DRONEDARONE HCL [Suspect]
     Indication: ATRIAL FIBRILLATION
     Route: 048
     Dates: start: 20110316
  7. BENAZEPRIL HYDROCHLORIDE [Concomitant]
     Dates: end: 20110411

REACTIONS (2)
  - IRON DEFICIENCY ANAEMIA [None]
  - RENAL FAILURE ACUTE [None]
